FAERS Safety Report 4423930-3 (Version None)
Quarter: 2004Q3

REPORT INFORMATION
  Report Type: 
  Country: None (occurrence: None)
  Receive Date: 20040805
  Receipt Date: 20040723
  Transmission Date: 20050211
  Serious: Yes (Life-Threatening, Hospitalization)
  Sender: FDA-Public Use
  Company Number: 2004218603FR

PATIENT
  Age: 72 Year
  Sex: Female
  Weight: 72 kg

DRUGS (6)
  1. CELEBREX [Suspect]
     Indication: OSTEOARTHRITIS
     Dosage: 200 MG, QD, ORAL
     Route: 048
     Dates: start: 20040521, end: 20040601
  2. ZONDAR (DIACEREIN) [Concomitant]
  3. FENOFIBRATE [Concomitant]
  4. LODOZ [Concomitant]
  5. EUPANTOL [Concomitant]
  6. FOSAMAX [Concomitant]

REACTIONS (3)
  - PERITONITIS [None]
  - SMALL INTESTINAL OBSTRUCTION [None]
  - SMALL INTESTINAL PERFORATION [None]
